FAERS Safety Report 6164181-4 (Version None)
Quarter: 2009Q2

REPORT INFORMATION
  Report Type: 
  Country: None (occurrence: None)
  Receive Date: 20090420
  Receipt Date: 20090407
  Transmission Date: 20091009
  Serious: No
  Sender: FDA-Public Use
  Company Number: B0570040A

PATIENT
  Age: 72 Year
  Sex: Female

DRUGS (4)
  1. DIGOXIN [Suspect]
  2. SOTALOL HCL [Suspect]
  3. SERTRALINE [Suspect]
  4. NICOUMALONE (FORMULATION UNKNOWN) (NICOUMALONE) [Suspect]

REACTIONS (7)
  - ASPARTATE AMINOTRANSFERASE INCREASED [None]
  - BLOOD GLUCOSE INCREASED [None]
  - BRADYCARDIA [None]
  - CARDIOACTIVE DRUG LEVEL DECREASED [None]
  - ELECTROCARDIOGRAM T WAVE ABNORMAL [None]
  - INTERNATIONAL NORMALISED RATIO INCREASED [None]
  - TORSADE DE POINTES [None]
